FAERS Safety Report 5454059-3 (Version None)
Quarter: 2007Q3

REPORT INFORMATION
  Report Type: 
  Country: None (occurrence: None)
  Receive Date: 20070917
  Receipt Date: 20070906
  Transmission Date: 20080115
  Serious: Yes (Other)
  Sender: FDA-Public Use
  Company Number: FR-ROCHE-516299

PATIENT
  Age: 20 Year
  Sex: Male

DRUGS (2)
  1. ISOTRETINOIN [Suspect]
     Indication: DRUG USE FOR UNKNOWN INDICATION
     Route: 065
     Dates: end: 20041108
  2. ISOTRETINOIN [Suspect]
     Route: 065
     Dates: start: 20030101

REACTIONS (1)
  - LIGAMENT RUPTURE [None]
